FAERS Safety Report 23251942 (Version 1)
Quarter: 2023Q4

REPORT INFORMATION
  Report Type: Report from Study
  Country: LT (occurrence: LT)
  Receive Date: 20231201
  Receipt Date: 20231201
  Transmission Date: 20240110
  Serious: Yes (Hospitalization)
  Sender: FDA-Public Use
  Company Number: LT-JNJFOC-20231112562

PATIENT
  Age: 8 Decade
  Sex: Female
  Weight: 70 kg

DRUGS (27)
  1. AMBRISENTAN [Suspect]
     Active Substance: AMBRISENTAN
     Indication: Pulmonary arterial hypertension
     Dosage: 5
     Route: 048
     Dates: start: 20230905
  2. BOSENTAN [Suspect]
     Active Substance: BOSENTAN
     Indication: Pulmonary arterial hypertension
     Dosage: 125
     Route: 048
     Dates: start: 20221215, end: 20230209
  3. BOSENTAN [Suspect]
     Active Substance: BOSENTAN
     Dosage: 250
     Route: 048
     Dates: start: 20230209, end: 20230905
  4. SELEXIPAG [Suspect]
     Active Substance: SELEXIPAG
     Indication: Pulmonary arterial hypertension
     Dosage: 400 MICROGRAM
     Route: 048
     Dates: start: 20230411, end: 20230427
  5. SELEXIPAG [Suspect]
     Active Substance: SELEXIPAG
     Indication: Systemic scleroderma
     Dosage: 800 MICROGRAM
     Route: 048
     Dates: start: 20230427, end: 20230509
  6. SELEXIPAG [Suspect]
     Active Substance: SELEXIPAG
     Dosage: 1200 MICROGRAM
     Route: 048
     Dates: start: 20230509, end: 20230523
  7. SELEXIPAG [Suspect]
     Active Substance: SELEXIPAG
     Dosage: 1600 MICROGRAM
     Route: 048
     Dates: start: 20230523, end: 20230606
  8. SELEXIPAG [Suspect]
     Active Substance: SELEXIPAG
     Dosage: 2000 MICROGRAM
     Route: 048
     Dates: start: 20230606, end: 20230629
  9. SELEXIPAG [Suspect]
     Active Substance: SELEXIPAG
     Dosage: 2400 MICROGRAM
     Route: 048
     Dates: start: 20230629, end: 20230803
  10. SELEXIPAG [Suspect]
     Active Substance: SELEXIPAG
     Dosage: 2800 MICROGRAM
     Route: 048
     Dates: start: 20230803, end: 20230905
  11. SELEXIPAG [Suspect]
     Active Substance: SELEXIPAG
     Dosage: 1600 MICROGRAM
     Route: 048
     Dates: start: 20230905, end: 20230919
  12. SELEXIPAG [Suspect]
     Active Substance: SELEXIPAG
     Dosage: 3200 MICROGRAM
     Route: 048
     Dates: start: 20230919
  13. PERINDOPRIL [Concomitant]
     Active Substance: PERINDOPRIL
     Indication: Hypertension
     Dosage: UNK
     Route: 048
     Dates: start: 20220929, end: 20221026
  14. SPIRONOLACTONE [Concomitant]
     Active Substance: SPIRONOLACTONE
     Indication: Cardiac failure
     Dosage: UNK
     Route: 048
     Dates: start: 20210504, end: 20230321
  15. ZOLPIDEM [Concomitant]
     Active Substance: ZOLPIDEM TARTRATE
     Indication: Sleep disorder
     Dosage: UNK
     Route: 048
     Dates: start: 20220527, end: 20221221
  16. AMIODARONE [Concomitant]
     Active Substance: AMIODARONE
     Indication: Atrial flutter
     Dosage: UNK
     Route: 048
     Dates: start: 20220929, end: 20221028
  17. FERROUS SULFATE [Concomitant]
     Active Substance: FERROUS SULFATE
     Indication: Prophylaxis
     Dosage: UNK
     Route: 048
     Dates: start: 20230309, end: 20230607
  18. NIFEDIPINE [Concomitant]
     Active Substance: NIFEDIPINE
     Indication: Hypertension
     Dosage: UNK
     Route: 048
     Dates: start: 20210310, end: 20221031
  19. APIXABAN [Concomitant]
     Active Substance: APIXABAN
     Indication: Atrial flutter
     Dosage: UNK
     Route: 048
     Dates: start: 20221113
  20. SILDENAFIL [Concomitant]
     Active Substance: SILDENAFIL
     Indication: Pulmonary arterial hypertension
     Dosage: 60
     Route: 048
     Dates: start: 20221028
  21. ZOPICLONE [Concomitant]
     Active Substance: ZOPICLONE
     Indication: Sleep disorder
     Dosage: UNK
     Route: 048
     Dates: start: 20221221, end: 20230314
  22. TRIMETAZIDINE [Concomitant]
     Active Substance: TRIMETAZIDINE
     Indication: Angina pectoris
     Dosage: UNK
     Route: 048
     Dates: start: 20220310
  23. ESOMEPRAZOLE [Concomitant]
     Active Substance: ESOMEPRAZOLE
     Indication: Gastrooesophageal reflux disease
     Dosage: UNK
     Route: 048
     Dates: start: 20230317, end: 20230402
  24. NEBIVOLOL [Concomitant]
     Active Substance: NEBIVOLOL
     Indication: Atrial flutter
     Dosage: UNK
     Route: 048
     Dates: start: 20220929, end: 20221026
  25. TORASEMIDUM [Concomitant]
     Indication: Cardiac failure
     Dosage: UNK
     Route: 048
     Dates: start: 20220708
  26. BISOPROLOL [Concomitant]
     Active Substance: BISOPROLOL\BISOPROLOL FUMARATE
     Indication: Atrial flutter
     Route: 048
     Dates: start: 20221116
  27. QUETIAPINE [Concomitant]
     Active Substance: QUETIAPINE
     Indication: Sleep disorder
     Dosage: UNK
     Route: 048
     Dates: start: 20230605

REACTIONS (5)
  - Hypokalaemia [Recovering/Resolving]
  - Pneumonia [Recovering/Resolving]
  - Anaemia [Recovering/Resolving]
  - Cardiac failure [Recovering/Resolving]
  - Hepatic function abnormal [Recovered/Resolved]

NARRATIVE: CASE EVENT DATE: 20230905
